FAERS Safety Report 20527407 (Version 1)
Quarter: 2022Q1

REPORT INFORMATION
  Report Type: Spontaneous
  Country: US (occurrence: US)
  Receive Date: 20220228
  Receipt Date: 20220228
  Transmission Date: 20220423
  Serious: No
  Sender: FDA-Public Use
  Company Number: US-INSUD PHARMA-2202US00620

PATIENT

DRUGS (3)
  1. PROGESTERONE [Suspect]
     Active Substance: PROGESTERONE
     Indication: Hormone replacement therapy
     Dosage: 100 MILLIGRAM, UNKNOWN
     Route: 048
  2. PROGESTERONE [Suspect]
     Active Substance: PROGESTERONE
     Dosage: 200 MILLIGRAM, UNKNOWN
     Route: 048
  3. PROGESTERONE [Suspect]
     Active Substance: PROGESTERONE
     Dosage: 300 MILLIGRAM, QD
     Route: 048

REACTIONS (5)
  - Breast disorder female [Not Recovered/Not Resolved]
  - Breast tenderness [Not Recovered/Not Resolved]
  - Intermenstrual bleeding [Not Recovered/Not Resolved]
  - Dizziness [Not Recovered/Not Resolved]
  - Product use in unapproved indication [Unknown]
